FAERS Safety Report 6328850-5 (Version None)
Quarter: 2009Q3

REPORT INFORMATION
  Report Type: 
  Country: None (occurrence: None)
  Receive Date: 20090825
  Receipt Date: 20090825
  Transmission Date: 20100115
  Serious: Yes (Death)
  Sender: FDA-Public Use
  Company Number: None

PATIENT
  Age: 1 Day
  Sex: Male
  Weight: 1 kg

DRUGS (5)
  1. CUROSURF [Suspect]
     Indication: NEONATAL RESPIRATORY DISTRESS SYNDROME
     Dosage: 2.5 ML/KG 1 INTRATRACHEAL
     Route: 039
     Dates: start: 20090629, end: 20090629
  2. CUROSURF [Suspect]
     Indication: PREMATURE BABY
     Dosage: 2.5 ML/KG 1 INTRATRACHEAL
     Route: 039
     Dates: start: 20090629, end: 20090629
  3. CAFCIT [Concomitant]
  4. AMPICILLIN [Concomitant]
  5. NOVOLIN R [Concomitant]

REACTIONS (5)
  - GENERAL PHYSICAL HEALTH DETERIORATION [None]
  - HAEMORRHAGE INTRACRANIAL [None]
  - NEONATAL DISORDER [None]
  - NO THERAPEUTIC RESPONSE [None]
  - PULMONARY HAEMORRHAGE [None]
